FAERS Safety Report 4988326-4 (Version None)
Quarter: 2006Q2

REPORT INFORMATION
  Report Type: 
  Country: None (occurrence: None)
  Receive Date: 20060425
  Receipt Date: 20060411
  Transmission Date: 20061013
  Serious: Yes (Hospitalization)
  Sender: FDA-Public Use
  Company Number: S06-GER-01552-01

PATIENT
  Age: 40 Year
  Sex: Female
  Weight: 70 kg

DRUGS (4)
  1. ESCITALOPRAM OXALATE [Suspect]
     Dosage: 400 MG QD PO
     Route: 048
  2. RISPERDAL [Suspect]
     Dosage: 45 MG QD PO
     Route: 048
  3. CYMBALTA [Suspect]
     Dosage: 4800 MG QD PO
     Route: 048
  4. STANGYL (TRIMIPRAMINE MALEATE) [Suspect]
     Dosage: 250 MG QD PO
     Route: 048

REACTIONS (7)
  - ACIDOSIS [None]
  - BOWEL SOUNDS ABNORMAL [None]
  - CONVULSION [None]
  - DEPENDENCE ON RESPIRATOR [None]
  - FATIGUE [None]
  - MULTIPLE DRUG OVERDOSE [None]
  - SUICIDE ATTEMPT [None]
